FAERS Safety Report 17563316 (Version 2)
Quarter: 2020Q1

REPORT INFORMATION
  Report Type: Report from Study
  Country: SG (occurrence: SG)
  Receive Date: 20200319
  Receipt Date: 20200326
  Transmission Date: 20200409
  Serious: Yes (Hospitalization)
  Sender: FDA-Public Use
  Company Number: SG-EXELIXIS-XL18420028212

PATIENT
  Age: 57 Year
  Sex: Male

DRUGS (11)
  1. METFORMIN [Concomitant]
     Active Substance: METFORMIN HYDROCHLORIDE
  2. LOSARTAN. [Concomitant]
     Active Substance: LOSARTAN
  3. LOVASTATIN. [Concomitant]
     Active Substance: LOVASTATIN
  4. ATEZOLIZUMAB. [Suspect]
     Active Substance: ATEZOLIZUMAB
     Indication: HEPATOCELLULAR CARCINOMA
     Dosage: 1200 MG, Q3WEEKS
     Route: 042
     Dates: start: 20200303
  5. HYDROCORTISONE. [Concomitant]
     Active Substance: HYDROCORTISONE
  6. CELECOXIB. [Concomitant]
     Active Substance: CELECOXIB
  7. CETRIZINE [Concomitant]
     Active Substance: CETIRIZINE HYDROCHLORIDE
  8. OMEPRAZOLE. [Concomitant]
     Active Substance: OMEPRAZOLE
  9. XL184 [Suspect]
     Active Substance: CABOZANTINIB
     Indication: HEPATOCELLULAR CARCINOMA
     Dosage: 40 MG, QD
     Route: 048
     Dates: start: 20200303
  10. CHLORPHENIRAMINE. [Concomitant]
     Active Substance: CHLORPHENIRAMINE
  11. SODIUM CHLORIDE. [Concomitant]
     Active Substance: SODIUM CHLORIDE

REACTIONS (2)
  - Hyponatraemia [Recovering/Resolving]
  - Pyrexia [Recovering/Resolving]

NARRATIVE: CASE EVENT DATE: 20200313
